FAERS Safety Report 9796221 (Version 5)
Quarter: 2014Q1

REPORT INFORMATION
  Report Type: Spontaneous
  Country: US (occurrence: US)
  Receive Date: 20140103
  Receipt Date: 20140303
  Transmission Date: 20141002
  Serious: Yes (Other)
  Sender: FDA-Public Use
  Company Number: US-INCYTE CORPORATION-2013IN003128

PATIENT
  Age: 76 Year
  Sex: Male

DRUGS (18)
  1. JAKAFI [Suspect]
     Indication: MYELOFIBROSIS
     Dosage: 15 MG, BID
     Route: 048
     Dates: start: 20130512
  2. JAKAFI [Suspect]
     Indication: MYELOPROLIFERATIVE DISORDER
     Dosage: 15 MG, BID
     Route: 048
     Dates: start: 20130514
  3. COUMADIN                           /00014802/ [Concomitant]
     Dosage: 5 MG, QD
     Route: 048
  4. DIGITEK [Concomitant]
     Dosage: 0.125 MG, QD
     Route: 048
  5. DIGITEK [Concomitant]
     Dosage: 125 MCG, QD
     Route: 048
  6. HYDROXYUREA [Concomitant]
     Dosage: 100 MG, BID
  7. HYDROXYUREA [Concomitant]
     Dosage: 500 MG, BID
  8. CARVEDILOL [Concomitant]
     Dosage: 12.5 MG, BID EVERY DAY WITH FOOD
     Route: 048
  9. LASIX                              /00032601/ [Concomitant]
     Dosage: 20 MG, QD
     Route: 048
  10. TYLENOL                            /00020001/ [Concomitant]
     Dosage: 500 MG, BID
  11. TYLENOL                            /00020001/ [Concomitant]
     Dosage: 325 MG, EVERY 4 HOURS AS NEEDED
     Route: 048
  12. FISH OIL [Concomitant]
     Dosage: 1 DF, TID
     Route: 048
  13. ISOSORBIDE [Concomitant]
     Dosage: 30 MG, BID
     Route: 048
  14. ISOSORBIDE [Concomitant]
     Dosage: 30 MG, QD
     Route: 048
  15. ALTACE [Concomitant]
     Dosage: 5 MG, QD
     Route: 048
  16. FENOFIBRATE [Concomitant]
     Dosage: 54 MG, QD
     Route: 048
  17. POTASSIUM CHLORIDE [Concomitant]
     Dosage: 20 MEQ, BID
  18. POTASSIUM CHLORIDE [Concomitant]
     Dosage: 10 MEQ, TID EVERY DAY WITH FOOD
     Route: 048

REACTIONS (5)
  - Erythropoiesis abnormal [Recovering/Resolving]
  - Anaemia [Not Recovered/Not Resolved]
  - Disease progression [Unknown]
  - Fatigue [Unknown]
  - Oesophagitis [Not Recovered/Not Resolved]
